FAERS Safety Report 9789679 (Version 1)
Quarter: 2013Q4

REPORT INFORMATION
  Report Type: Spontaneous
  Country: US (occurrence: None)
  Receive Date: 20131227
  Receipt Date: 20131227
  Transmission Date: 20140711
  Serious: Yes (Death, Other)
  Sender: FDA-Public Use
  Company Number: ADR-2013-02327

PATIENT
  Sex: Female

DRUGS (3)
  1. BACLOFEN [Suspect]
     Indication: CANCER PAIN
     Dosage: 550.54 MCG/DAY
  2. DILAUDID [Suspect]
     Dosage: 2.2022 MG/DAY
  3. BUPIVICAINE [Suspect]
     Dosage: 33.032 MG/DAY

REACTIONS (2)
  - Condition aggravated [None]
  - Rectal cancer metastatic [None]
